FAERS Safety Report 10195925 (Version 2)
Quarter: 2014Q2

REPORT INFORMATION
  Report Type: Spontaneous
  Country: US (occurrence: None)
  Receive Date: 20140521
  Receipt Date: 20140527
  Transmission Date: 20141212
  Serious: Yes (Other)
  Sender: FDA-Public Use
  Company Number: 2014P1004037

PATIENT
  Age: 77 Year
  Sex: Male

DRUGS (6)
  1. PREDNISONE [Suspect]
     Indication: DIFFUSE LARGE B-CELL LYMPHOMA
  2. VINCRISTINE [Suspect]
     Indication: DIFFUSE LARGE B-CELL LYMPHOMA
  3. ETOPOSIDE [Concomitant]
  4. CYCLOPHOSPHAMIDE [Concomitant]
  5. RITUXIMAB [Concomitant]
  6. DOXORUBICIN [Suspect]
     Indication: DIFFUSE LARGE B-CELL LYMPHOMA

REACTIONS (6)
  - Dyspnoea [None]
  - Nerve injury [None]
  - Diaphragm muscle weakness [None]
  - Device stimulation issue [None]
  - Oxygen saturation decreased [None]
  - No therapeutic response [None]
